FAERS Safety Report 9687703 (Version 2)
Quarter: 2013Q4

REPORT INFORMATION
  Report Type: Spontaneous
  Country: US (occurrence: US)
  Receive Date: 20131114
  Receipt Date: 20131114
  Transmission Date: 20140711
  Serious: No
  Sender: FDA-Public Use
  Company Number: US-PFIZER INC-2013262949

PATIENT
  Age: 77 Year
  Sex: Female

DRUGS (1)
  1. XANAX [Suspect]
     Dosage: 0.5 MG, UNK

REACTIONS (4)
  - Product label issue [Unknown]
  - Product lot number issue [Unknown]
  - Blood pressure increased [Unknown]
  - Malaise [Unknown]
